FAERS Safety Report 16768577 (Version 1)
Quarter: 2019Q3

REPORT INFORMATION
  Report Type: Spontaneous
  Country: CA (occurrence: CA)
  Receive Date: 20190903
  Receipt Date: 20190903
  Transmission Date: 20191005
  Serious: Yes (Hospitalization, Other)
  Sender: FDA-Public Use
  Company Number: CA-TEVA-2019-CA-1100592

PATIENT
  Age: 43 Year
  Sex: Male

DRUGS (3)
  1. MESALAZINE [Suspect]
     Active Substance: MESALAMINE
     Indication: COLITIS ULCERATIVE
     Route: 065
  2. INFLIXIMAB [Suspect]
     Active Substance: INFLIXIMAB
     Indication: PRODUCT USED FOR UNKNOWN INDICATION
     Route: 065
  3. INFLIXIMAB [Suspect]
     Active Substance: INFLIXIMAB
     Route: 065

REACTIONS (5)
  - Abdominal symptom [Recovering/Resolving]
  - Pleuritic pain [Recovering/Resolving]
  - Toxicity to various agents [Recovering/Resolving]
  - Dyspnoea [Recovering/Resolving]
  - Interstitial lung disease [Recovering/Resolving]
